FAERS Safety Report 7308209-4 (Version None)
Quarter: 2011Q1

REPORT INFORMATION
  Report Type: 
  Country: None (occurrence: None)
  Receive Date: 20110223
  Receipt Date: 20110209
  Transmission Date: 20110831
  Serious: Yes (Death, Hospitalization)
  Sender: FDA-Public Use
  Company Number: DE-ROCHE-761185

PATIENT
  Sex: Male
  Weight: 63 kg

DRUGS (5)
  1. OXALIPLATIN [Suspect]
     Route: 042
     Dates: start: 20101103, end: 20101124
  2. BEVACIZUMAB [Suspect]
     Dosage: DURING THIS TIME ADMINISTERED TWICE.
     Route: 042
     Dates: start: 20101103, end: 20101124
  3. RIBOFLUOR [Suspect]
     Dosage: 500 MG GIVEN ON 24 AND 25 DEC 2010. 3200 MG GIVEN ON 24 AND 26 NOV 2010.
     Route: 042
     Dates: start: 20101103, end: 20101126
  4. RIBOFOLIN [Suspect]
     Route: 042
     Dates: start: 20101124
  5. RIBOFLUOR [Suspect]
     Dosage: ADJUVANT THERAPY
     Route: 042
     Dates: start: 20090406, end: 20090703

REACTIONS (7)
  - STOMATITIS [None]
  - CANDIDA TEST POSITIVE [None]
  - BLOOD LACTATE DEHYDROGENASE INCREASED [None]
  - BACTERIAL TEST POSITIVE [None]
  - GENERAL PHYSICAL HEALTH DETERIORATION [None]
  - PNEUMONIA [None]
  - ASPERGILLUS TEST POSITIVE [None]
